FAERS Safety Report 7090998-8 (Version None)
Quarter: 2010Q4

REPORT INFORMATION
  Report Type: 
  Country: None (occurrence: None)
  Receive Date: 20101109
  Receipt Date: 20101028
  Transmission Date: 20110411
  Serious: Yes (Hospitalization)
  Sender: FDA-Public Use
  Company Number: US-SANOFI-AVENTIS-2010SA058923

PATIENT
  Age: 86 Year
  Sex: Male
  Weight: 104.3 kg

DRUGS (17)
  1. MULTAQ [Suspect]
     Indication: ATRIAL FIBRILLATION
     Route: 048
     Dates: start: 20100916, end: 20100930
  2. LOPRESSOR [Concomitant]
  3. CALCITRIOL [Concomitant]
  4. AMBIEN [Concomitant]
  5. VICODIN [Concomitant]
     Dosage: 5/500MG PRN
  6. GLUCOTROL XL [Concomitant]
  7. MICARDIS HCT [Concomitant]
     Dosage: 40/12.5 DAILY, 5X/WEEK
  8. LASIX [Concomitant]
     Dosage: 40MG DAILY ON DAYS TAKES MICARDIS HCT
  9. ARANESP [Concomitant]
     Dosage: 100MCG/ML BIMONTHLY DOSE:100 MILLIGRAM(S)/MILLILITRE
     Route: 058
  10. COUMADIN [Concomitant]
  11. CRESTOR [Concomitant]
  12. SODIUM BICARBONATE [Concomitant]
  13. DITROPAN XL [Concomitant]
  14. NITRO-DUR [Concomitant]
     Route: 062
  15. CENTRUM [Concomitant]
  16. ZETIA [Concomitant]
  17. LOPID [Concomitant]

REACTIONS (5)
  - ATRIAL FIBRILLATION [None]
  - BLOOD CREATININE INCREASED [None]
  - DEHYDRATION [None]
  - RENAL FAILURE [None]
  - UPPER RESPIRATORY TRACT INFECTION [None]
